FAERS Safety Report 24230644 (Version 3)
Quarter: 2025Q1

REPORT INFORMATION
  Report Type: Spontaneous
  Country: US (occurrence: US)
  Receive Date: 20240821
  Receipt Date: 20250305
  Transmission Date: 20250409
  Serious: No
  Sender: BLUEPRINT MEDICINES
  Company Number: US-Blueprint Medicines Corporation-4487

PATIENT
  Age: 72 Year
  Sex: Female

DRUGS (1)
  1. AYVAKIT [Suspect]
     Active Substance: AVAPRITINIB
     Indication: Haematopoietic neoplasm
     Dosage: MORNING
     Route: 065
     Dates: start: 20250207

REACTIONS (8)
  - Cognitive disorder [Unknown]
  - Abdominal discomfort [Unknown]
  - Dry mouth [Unknown]
  - Swelling face [Unknown]
  - Brain fog [Unknown]
  - Orbital swelling [Unknown]
  - Arthralgia [Unknown]
  - Arthritis [Unknown]
